FAERS Safety Report 5823579-1 (Version None)
Quarter: 2008Q3

REPORT INFORMATION
  Report Type: 
  Country: None (occurrence: None)
  Receive Date: 20080725
  Receipt Date: 20080714
  Transmission Date: 20090109
  Serious: Yes (Life-Threatening)
  Sender: FDA-Public Use
  Company Number: IT-PFIZER INC-2007057681

PATIENT
  Age: 67 Year
  Sex: Male

DRUGS (5)
  1. ZYVOXID [Suspect]
     Indication: PNEUMONIA LEGIONELLA
     Route: 042
     Dates: start: 20070511, end: 20070606
  2. ENOXAPARIN SODIUM [Concomitant]
  3. ZITHROMAX [Concomitant]
     Dates: start: 20070513, end: 20070522
  4. MERREM [Concomitant]
     Route: 042
     Dates: start: 20070513, end: 20070603
  5. DIFLUCAN [Concomitant]
     Route: 042
     Dates: start: 20070513, end: 20070522

REACTIONS (2)
  - ANAEMIA [None]
  - THROMBOCYTOPENIA [None]
